FAERS Safety Report 10182347 (Version 1)
Quarter: 2014Q2

REPORT INFORMATION
  Report Type: Spontaneous
  Country: CH (occurrence: CH)
  Receive Date: 20140520
  Receipt Date: 20140520
  Transmission Date: 20141212
  Serious: Yes (Hospitalization)
  Sender: FDA-Public Use
  Company Number: CH-AMGEN INC.-CHESP2014035875

PATIENT
  Age: 33 Year
  Sex: Female

DRUGS (22)
  1. NEUPOGEN [Suspect]
     Indication: AGRANULOCYTOSIS
     Dosage: 3000000 IU, 1 PER 1 DAY
     Route: 058
     Dates: start: 20140401, end: 20140403
  2. CEFEPIM SANDOZ [Suspect]
     Indication: UROSEPSIS
     Dosage: 2 G, 3 PER 1 DAY
     Route: 041
     Dates: start: 20140328, end: 20140330
  3. CEFEPIME ORPHA [Suspect]
     Indication: UROSEPSIS
     Dosage: 1 G, 3 PER 1 DAY
     Route: 041
     Dates: start: 20140330, end: 20140403
  4. CLEXANE [Suspect]
     Indication: THROMBOSIS PROPHYLAXIS
     Dosage: 40 MG, 1 PER 1 DAY
     Route: 058
     Dates: start: 20140329, end: 20140403
  5. ROCEPHIN [Concomitant]
     Indication: UROSEPSIS
     Dosage: 2 G, UNK
     Route: 041
     Dates: start: 20140328, end: 20140328
  6. CEFEPIME ORPHA [Concomitant]
     Indication: UROSEPSIS
     Dosage: 2 G, UNK
     Route: 041
     Dates: start: 20140328, end: 20140328
  7. METRONIDAZOLE BIOREN [Concomitant]
     Indication: NEUTROPENIC COLITIS
     Dosage: 500 MG, UNK
     Route: 041
     Dates: start: 20140328, end: 20140328
  8. FLAGYL                             /00012501/ [Concomitant]
     Indication: NEUTROPENIC COLITIS
     Dosage: 500 MG, 3 PER 1 DAY
     Dates: start: 20140329, end: 20140402
  9. PERFALGAN [Concomitant]
     Indication: PAIN
     Dosage: 1 G, 4 PER 1 DAY
     Route: 041
     Dates: start: 20140328, end: 20140331
  10. DAFALGAN [Concomitant]
     Indication: PAIN
     Dosage: 1 G, 4 PER 1 DAY
     Route: 048
     Dates: start: 20140331, end: 20140404
  11. KCL ZYMA [Concomitant]
     Indication: HYPOKALAEMIA
     Dosage: 16 MMOL, 3 PER 1 DAY
     Route: 048
     Dates: start: 20140331, end: 20140404
  12. NEXIUM                             /01479302/ [Concomitant]
     Indication: REFLUX GASTRITIS
     Dosage: 44.5 MG, 1 PER 1 DAY
     Route: 048
     Dates: start: 20140331, end: 20140404
  13. BUSCOPAN [Concomitant]
     Indication: ABDOMINAL PAIN
     Dosage: 10 MG, 3 PER 1 DAY
     Route: 048
     Dates: start: 20140331, end: 20140404
  14. MOTILIUM                           /00498201/ [Concomitant]
     Indication: NAUSEA
     Dosage: 10 MG, 3 PER 1 DAY
     Route: 048
     Dates: start: 20140402, end: 20140404
  15. BEPANTHEN                          /00178901/ [Concomitant]
     Indication: GINGIVITIS
     Dosage: 4 PER 1 DAY
     Route: 002
     Dates: start: 20140331, end: 20140404
  16. BRUFEN                             /00109201/ [Concomitant]
     Indication: PAIN
     Dosage: 400 MG, UNK
     Route: 048
  17. MORPHIN HCL SINTETICA [Concomitant]
     Dosage: 2 MG, UNK
     Route: 040
     Dates: start: 20140401, end: 20140401
  18. MUNDISAL [Concomitant]
     Dosage: UNK
     Route: 002
     Dates: start: 20140330, end: 20140330
  19. PRIMPERAN [Concomitant]
     Dosage: 10 MG, UNK
     Route: 040
     Dates: start: 20140330, end: 20140402
  20. PRIMPERAN [Concomitant]
     Dosage: 10 MG, PER DAY
     Dates: start: 20140330, end: 20140401
  21. PRIMPERAN [Concomitant]
     Dosage: 20 MG, UNK
     Dates: start: 20140402
  22. ZOVIRAX                            /00587302/ [Concomitant]
     Indication: GINGIVITIS
     Dosage: 200 MG, UNK
     Route: 040
     Dates: start: 20140328, end: 20140328

REACTIONS (4)
  - Type I hypersensitivity [Recovered/Resolved]
  - Pruritus generalised [Recovered/Resolved]
  - Flushing [Recovered/Resolved]
  - Urticaria [Recovered/Resolved]
